FAERS Safety Report 16523747 (Version 4)
Quarter: 2019Q3

REPORT INFORMATION
  Report Type: Report from Study
  Country: GB (occurrence: GB)
  Receive Date: 20190702
  Receipt Date: 20190822
  Transmission Date: 20191004
  Serious: Yes (Hospitalization, Other)
  Sender: FDA-Public Use
  Company Number: GB-MYLANLABS-2019M1061061

PATIENT
  Age: 47 Year
  Sex: Female

DRUGS (33)
  1. FLUCLOXACILLIN [Concomitant]
     Active Substance: FLUCLOXACILLIN
     Dosage: 1 GRAM, QD
     Route: 048
     Dates: start: 20160923, end: 20160929
  2. NAPROXEN. [Concomitant]
     Active Substance: NAPROXEN
     Indication: PAIN IN EXTREMITY
     Dosage: 500 MILLIGRAM, QD
     Route: 048
     Dates: start: 201605, end: 201606
  3. GABAPENTIN. [Concomitant]
     Active Substance: GABAPENTIN
     Indication: NEUROPATHY PERIPHERAL
     Dosage: 300 MILLIGRAM, QD
     Route: 048
     Dates: start: 201611
  4. AMITRIPTYLINE [Concomitant]
     Active Substance: AMITRIPTYLINE
     Dosage: 30 MILLIGRAM
     Route: 048
     Dates: start: 201410
  5. ADCAL D3 [Concomitant]
     Active Substance: CALCIUM CARBONATE\CHOLECALCIFEROL
     Dosage: 1 TABLET
     Route: 048
     Dates: start: 20150612
  6. CO-AMOXICLAV                       /01000301/ [Concomitant]
     Active Substance: AMOXICILLIN\CLAVULANATE POTASSIUM
     Indication: VASCULAR DEVICE INFECTION
     Dosage: 1875 MILLIGRAM, Q3D
     Route: 048
     Dates: start: 20160414, end: 20160420
  7. DIFFLAM [Concomitant]
     Active Substance: BENZYDAMINE HYDROCHLORIDE
     Indication: STOMATITIS
     Dosage: UNK
     Route: 048
     Dates: start: 20160803
  8. TRASTUZUMAB. [Suspect]
     Active Substance: TRASTUZUMAB
     Dosage: 441 MILLIGRAM, Q3W
     Route: 042
     Dates: start: 20150808, end: 20160127
  9. DOCETAXEL. [Suspect]
     Active Substance: DOCETAXEL
     Dosage: 140 MILLIGRAM, Q3W
     Route: 042
     Dates: start: 20150424, end: 20150605
  10. HERCEPTIN [Suspect]
     Active Substance: TRASTUZUMAB
     Dosage: MAINTAINANCE DOSE
     Route: 042
     Dates: start: 20150515, end: 20160309
  11. DENOSUMAB [Concomitant]
     Active Substance: DENOSUMAB
     Dosage: 120 MILLIGRAM, Q3W
     Route: 058
     Dates: start: 20150515
  12. GELCLAIR                           /06503801/ [Concomitant]
     Indication: STOMATITIS
     Dosage: 40 MILLILITER
     Route: 048
     Dates: start: 201507, end: 201507
  13. TRASTUZUMAB. [Suspect]
     Active Substance: TRASTUZUMAB
     Dosage: 483 MILLIGRAM, Q3W
     Route: 042
     Dates: start: 20150515, end: 20150605
  14. TRASTUZUMAB. [Suspect]
     Active Substance: TRASTUZUMAB
     Dosage: 630 MILLIGRAM, Q3W
     Route: 042
     Dates: start: 20150710, end: 20150710
  15. PERTUZUMAB. [Suspect]
     Active Substance: PERTUZUMAB
     Indication: HER-2 POSITIVE BREAST CANCER
     Dosage: 420 MILLIGRAM, Q3W
     Route: 042
     Dates: start: 20150515, end: 20160309
  16. AMOXICILLIN. [Concomitant]
     Active Substance: AMOXICILLIN
     Indication: LOWER RESPIRATORY TRACT INFECTION
     Dosage: UNK
     Route: 048
     Dates: start: 20160803, end: 20160812
  17. DENOSUMAB [Concomitant]
     Active Substance: DENOSUMAB
     Dosage: 120 MILLIGRAM, 6 WEEK
     Route: 058
     Dates: start: 20160518, end: 20180907
  18. PYRIDOXINE [Concomitant]
     Active Substance: PYRIDOXINE
     Indication: NEUROPATHY PERIPHERAL
     Dosage: 50 MILLIGRAM
     Route: 048
     Dates: start: 201611
  19. TRASTUZUMAB. [Suspect]
     Active Substance: TRASTUZUMAB
     Dosage: 260 MILLIGRAM, Q3W
     Route: 042
     Dates: start: 20160404, end: 20161102
  20. DOCETAXEL. [Suspect]
     Active Substance: DOCETAXEL
     Indication: HER-2 POSITIVE BREAST CANCER
     Dosage: 100 MILLIGRAM, Q3W
     Route: 042
     Dates: start: 20150710, end: 20150826
  21. PERTUZUMAB. [Suspect]
     Active Substance: PERTUZUMAB
     Dosage: 840 MILLIGRAM
     Route: 042
     Dates: start: 20150423, end: 20150423
  22. HERCEPTIN [Suspect]
     Active Substance: TRASTUZUMAB
     Indication: HER-2 POSITIVE BREAST CANCER
     Dosage: 619.5 MILLIGRAM
     Route: 042
     Dates: start: 20150423, end: 20150423
  23. LOPERAMIDE [Concomitant]
     Active Substance: LOPERAMIDE
     Indication: DIARRHOEA
     Dosage: 2 MILLIGRAM
     Route: 048
     Dates: start: 201507
  24. FLUCONAZOLE. [Concomitant]
     Active Substance: FLUCONAZOLE
     Indication: STOMATITIS
     Dosage: 50 MILLIGRAM
     Route: 048
     Dates: start: 201507, end: 201507
  25. FLUCLOXACILLIN [Concomitant]
     Active Substance: FLUCLOXACILLIN
     Indication: CELLULITIS
     Dosage: 500 MILLIGRAM, QD
     Route: 048
     Dates: start: 20160818, end: 20160825
  26. FLUCLOXACILLIN [Concomitant]
     Active Substance: FLUCLOXACILLIN
     Indication: VASCULAR DEVICE INFECTION
     Dosage: 500 MILLIGRAM, QD
     Route: 048
     Dates: start: 20160919, end: 20160922
  27. TRASTUZUMAB. [Suspect]
     Active Substance: TRASTUZUMAB
     Indication: HER-2 POSITIVE BREAST CANCER
     Dosage: 619.5 MILLIGRAM, Q3W
     Route: 042
     Dates: start: 20150423, end: 20150423
  28. TRASTUZUMAB. [Suspect]
     Active Substance: TRASTUZUMAB
     Dosage: 140 MILLIGRAM, Q3W
     Route: 042
     Dates: start: 20170208
  29. TRASTUZUMAB. [Suspect]
     Active Substance: TRASTUZUMAB
     Dosage: 180 MILLIGRAM, Q3W
     Route: 042
     Dates: start: 20170208, end: 20170705
  30. TRASTUZUMAB EMTANSINE [Suspect]
     Active Substance: ADO-TRASTUZUMAB EMTANSINE
     Indication: HER-2 POSITIVE BREAST CANCER
     Dosage: 260 MILLIGRAM, Q3W
     Route: 042
     Dates: start: 20160404, end: 20161102
  31. TRASTUZUMAB EMTANSINE [Suspect]
     Active Substance: ADO-TRASTUZUMAB EMTANSINE
     Dosage: 180 MILLIGRAM, Q3W
     Route: 042
     Dates: start: 20170208
  32. BEROCCA                            /01730501/ [Concomitant]
     Dosage: DOSE: 1
     Route: 048
  33. TAZOCIN [Concomitant]
     Active Substance: PIPERACILLIN SODIUM\TAZOBACTAM SODIUM
     Indication: VASCULAR DEVICE INFECTION
     Dosage: 450 MILLIGRAM
     Route: 042
     Dates: start: 20160414, end: 20160414

REACTIONS (23)
  - Lower respiratory tract infection [Recovered/Resolved]
  - Dyspnoea [Recovering/Resolving]
  - Nausea [Unknown]
  - Pain [Unknown]
  - Fatigue [Recovering/Resolving]
  - Neuropathy peripheral [Recovering/Resolving]
  - Vascular device infection [Recovered/Resolved]
  - Cellulitis [Recovered/Resolved]
  - Fungal infection [Recovered/Resolved]
  - Pneumonia [Recovered/Resolved]
  - Gastrooesophageal reflux disease [Recovering/Resolving]
  - Peripheral sensory neuropathy [Not Recovered/Not Resolved]
  - Pain in extremity [Recovered/Resolved]
  - Nasopharyngitis [Recovered/Resolved]
  - Palmar-plantar erythrodysaesthesia syndrome [Recovered/Resolved]
  - Constipation [Recovered/Resolved]
  - Stomatitis [Not Recovered/Not Resolved]
  - Decreased appetite [Recovered/Resolved]
  - Back pain [Recovered/Resolved]
  - Pyrexia [Not Recovered/Not Resolved]
  - Diarrhoea [Recovering/Resolving]
  - Headache [Recovered/Resolved]
  - Alopecia [Recovered/Resolved]

NARRATIVE: CASE EVENT DATE: 20150615
